FAERS Safety Report 8807541 (Version 1)
Quarter: 2012Q4

REPORT INFORMATION
  Report Type: 
  Country: US (occurrence: US)
  Receive Date: 20120925
  Receipt Date: 20120925
  Transmission Date: 20130627
  Serious: Yes (Other)
  Sender: FDA-Public Use
  Company Number: US-PFIZER INC-2012235079

PATIENT
  Age: 59 Year
  Sex: Male
  Weight: 77.1 kg

DRUGS (4)
  1. DILANTIN [Suspect]
     Indication: CONVULSION
     Dosage: 400 mg, 1x/day
     Route: 048
  2. DILANTIN [Suspect]
     Dosage: 400 mg, 1x/day
     Route: 048
     Dates: start: 2012
  3. PHENYTOIN [Suspect]
     Indication: CONVULSION
     Dosage: UNK
  4. PHENOBARBITAL [Concomitant]
     Dosage: 120 mg, 1x/day

REACTIONS (4)
  - Convulsion [Not Recovered/Not Resolved]
  - Impaired driving ability [Not Recovered/Not Resolved]
  - Aura [Not Recovered/Not Resolved]
  - Drug ineffective [Unknown]
